FAERS Safety Report 5333670-4 (Version None)
Quarter: 2007Q2

REPORT INFORMATION
  Report Type: 
  Country: None (occurrence: None)
  Receive Date: 20070524
  Receipt Date: 20070522
  Transmission Date: 20071010
  Serious: Yes (Hospitalization)
  Sender: FDA-Public Use
  Company Number: A0652430A

PATIENT
  Age: 77 Year
  Sex: Male

DRUGS (4)
  1. AVANDIA [Suspect]
     Dosage: 4MG THREE TIMES PER DAY
     Route: 048
     Dates: start: 20050701
  2. AVANDAMET [Suspect]
     Dosage: 1TAB THREE TIMES PER DAY
     Route: 048
     Dates: start: 20060801
  3. PAXIL [Concomitant]
  4. METFORMIN HCL [Concomitant]

REACTIONS (2)
  - MYOCARDIAL INFARCTION [None]
  - OEDEMA [None]
